FAERS Safety Report 7472010-1 (Version None)
Quarter: 2011Q2

REPORT INFORMATION
  Report Type: 
  Country: None (occurrence: None)
  Receive Date: 20110511
  Receipt Date: 20100917
  Transmission Date: 20111010
  Serious: No
  Sender: FDA-Public Use
  Company Number: A0883243A

PATIENT
  Sex: Female
  Weight: 52.7 kg

DRUGS (4)
  1. TYKERB [Suspect]
     Indication: BREAST CANCER
     Dosage: 1250MGD PER DAY
     Route: 048
     Dates: start: 20100101
  2. XELODA [Suspect]
     Indication: BREAST CANCER
     Route: 048
     Dates: start: 20100101, end: 20101006
  3. ZOMETA [Concomitant]
     Indication: BREAST CANCER
     Route: 042
  4. HERCEPTIN [Concomitant]
     Indication: BREAST CANCER
     Dosage: 320MG EVERY 3 WEEKS
     Route: 042

REACTIONS (1)
  - NAUSEA [None]
